FAERS Safety Report 19866328 (Version 1)
Quarter: 2021Q3

REPORT INFORMATION
  Report Type: Spontaneous
  Country: CZ (occurrence: CZ)
  Receive Date: 20210921
  Receipt Date: 20210921
  Transmission Date: 20211014
  Serious: Yes (Death, Life-Threatening, Hospitalization, Disabling, Other)
  Sender: FDA-Public Use
  Company Number: CZ-BRISTOL-MYERS SQUIBB COMPANY-BMS-2021-092330

PATIENT
  Age: 85 Year
  Sex: Female
  Weight: 54 kg

DRUGS (9)
  1. SPIRIVA [Concomitant]
     Active Substance: TIOTROPIUM BROMIDE MONOHYDRATE
     Indication: PRODUCT USED FOR UNKNOWN INDICATION
     Dosage: 2 DF, DAILY (BREATHE IN TWO TIMES EVERY MORNING)
     Route: 055
  2. ERDOMED [Concomitant]
     Active Substance: ERDOSTEINE
     Indication: PRODUCT USED FOR UNKNOWN INDICATION
     Dosage: 3X1, 8HRS
     Route: 048
  3. APIXABAN [Suspect]
     Active Substance: APIXABAN
     Indication: CEREBROVASCULAR ACCIDENT PROPHYLAXIS
     Dosage: UNK
     Route: 065
     Dates: start: 202103, end: 202103
  4. HELICID [OMEPRAZOLE] [Concomitant]
     Active Substance: OMEPRAZOLE
     Indication: PRODUCT USED FOR UNKNOWN INDICATION
     Dosage: 20 MILLIGRAM, BID
     Route: 048
  5. PRESTARIUM NEO [Concomitant]
     Active Substance: PERINDOPRIL ARGININE
     Indication: PRODUCT USED FOR UNKNOWN INDICATION
     Dosage: 1X1
     Route: 048
  6. EUTHYROX [Concomitant]
     Active Substance: LEVOTHYROXINE SODIUM
     Indication: PRODUCT USED FOR UNKNOWN INDICATION
     Dosage: 75 MICROGRAM, ONCE A DAY ON MONDAY, WEDNESDAY, FRIDAY
     Route: 048
  7. APIXABAN [Suspect]
     Active Substance: APIXABAN
     Indication: DRUG INTOLERANCE
  8. COMIRNATY [Suspect]
     Active Substance: TOZINAMERAN
     Indication: COVID-19 IMMUNISATION
     Dosage: THE FIRST DOSE
     Route: 030
     Dates: start: 2021, end: 2021
  9. COMIRNATY [Suspect]
     Active Substance: TOZINAMERAN
     Dosage: THE SECOND DOSE
     Route: 030
     Dates: start: 20210325, end: 20210325

REACTIONS (19)
  - Muscle spasms [Unknown]
  - Arrhythmia [Fatal]
  - Syncope [Unknown]
  - Decreased appetite [Unknown]
  - Loss of consciousness [Fatal]
  - Generalised tonic-clonic seizure [Recovered/Resolved]
  - Pyrexia [Unknown]
  - Respiratory failure [Unknown]
  - Cerebral haemorrhage [Unknown]
  - Altered state of consciousness [Unknown]
  - Condition aggravated [Unknown]
  - Movement disorder [Unknown]
  - Malnutrition [Unknown]
  - Hypotension [Unknown]
  - Epilepsy [Fatal]
  - Postictal paralysis [Recovered/Resolved]
  - Incontinence [Unknown]
  - Vertigo [Unknown]
  - Urinary tract infection [Unknown]

NARRATIVE: CASE EVENT DATE: 2021
